FAERS Safety Report 5897456-4 (Version None)
Quarter: 2008Q3

REPORT INFORMATION
  Report Type: 
  Country: None (occurrence: None)
  Receive Date: 20080917
  Receipt Date: 20071016
  Transmission Date: 20090109
  Serious: Yes (Hospitalization)
  Sender: FDA-Public Use
  Company Number: PHEH2007US12116

PATIENT
  Sex: Female

DRUGS (1)
  1. FEMARA [Suspect]
     Indication: BREAST CANCER
     Dates: start: 20070701

REACTIONS (6)
  - BONE PAIN [None]
  - DEVICE FAILURE [None]
  - FEMUR FRACTURE [None]
  - GAIT DISTURBANCE [None]
  - SURGERY [None]
  - WALKING AID USER [None]
